FAERS Safety Report 17762016 (Version 1)
Quarter: 2020Q2

REPORT INFORMATION
  Report Type: Spontaneous
  Country: IT (occurrence: IT)
  Receive Date: 20200508
  Receipt Date: 20200508
  Transmission Date: 20200714
  Serious: Yes (Hospitalization)
  Sender: FDA-Public Use
  Company Number: IT-ALLERGAN-2018356US

PATIENT
  Sex: Female
  Weight: 75 kg

DRUGS (3)
  1. DEPAKIN [Suspect]
     Active Substance: VALPROATE SODIUM
     Indication: INTENTIONAL OVERDOSE
     Dosage: TOTAL
     Route: 048
     Dates: start: 20200419, end: 20200419
  2. ESCITALOPRAM OXALATE - BP [Suspect]
     Active Substance: ESCITALOPRAM OXALATE
     Indication: INTENTIONAL OVERDOSE
     Dosage: OVERDOSE: 28 DOSAGE FORMS OF CIPRALEX (FORM STRENGTH UNKNOWN)
     Route: 048
     Dates: start: 20200419, end: 20200419
  3. QUETIAPINE. [Suspect]
     Active Substance: QUETIAPINE
     Indication: INTENTIONAL OVERDOSE
     Dates: start: 20200419, end: 20200419

REACTIONS (3)
  - Intentional overdose [Unknown]
  - Somnolence [Recovering/Resolving]
  - Sopor [Recovering/Resolving]

NARRATIVE: CASE EVENT DATE: 20200419
